FAERS Safety Report 24386837 (Version 1)
Quarter: 2024Q4

REPORT INFORMATION
  Report Type: Spontaneous
  Country: CN (occurrence: CN)
  Receive Date: 20241002
  Receipt Date: 20241002
  Transmission Date: 20250114
  Serious: Yes (Hospitalization, Other)
  Sender: ACCORD
  Company Number: CN-MLMSERVICE-20240913-PI191491-00108-1

PATIENT
  Age: 51 Year
  Sex: Female

DRUGS (4)
  1. CLOZAPINE [Interacting]
     Active Substance: CLOZAPINE
     Indication: Schizophrenia
     Dosage: LONG-TERM TREATMENT WITH CLOZAPINE, WITH DOSAGE ADJUSTMENTS AS NEEDED
     Dates: start: 2007, end: 202111
  2. LITHIUM CARBONATE [Concomitant]
     Active Substance: LITHIUM CARBONATE
     Indication: Schizophrenia
     Dates: end: 202111
  3. LEVOTHYROXINE [Concomitant]
     Active Substance: LEVOTHYROXINE
     Indication: Hypothyroidism
     Dates: start: 2019
  4. CLONAZEPAM [Concomitant]
     Active Substance: CLONAZEPAM
     Indication: Sleep disorder
     Dates: end: 202111

REACTIONS (8)
  - Electrolyte imbalance [Unknown]
  - Electrocardiogram T wave abnormal [Unknown]
  - Intestinal obstruction [Recovered/Resolved]
  - C-reactive protein increased [Recovering/Resolving]
  - Drug interaction [Recovered/Resolved]
  - Electrocardiogram QT shortened [Unknown]
  - Pyrexia [Recovered/Resolved]
  - Toxicity to various agents [Recovering/Resolving]

NARRATIVE: CASE EVENT DATE: 20210101
